FAERS Safety Report 6149520-2 (Version None)
Quarter: 2009Q2

REPORT INFORMATION
  Report Type: 
  Country: None (occurrence: None)
  Receive Date: 20090409
  Receipt Date: 20090403
  Transmission Date: 20091009
  Serious: Yes (Hospitalization)
  Sender: FDA-Public Use
  Company Number: US-ASTRAZENECA-2009UW08509

PATIENT
  Age: 67 Year
  Sex: Female
  Weight: 53.5 kg

DRUGS (7)
  1. PULMICORT RESPULES [Suspect]
     Route: 055
  2. ALBUTEROL [Concomitant]
  3. SPIRIVA [Concomitant]
  4. ADVAIR HFA [Concomitant]
  5. PROTONIX [Concomitant]
  6. COREG [Concomitant]
  7. CLOTRIMAZOLE [Concomitant]

REACTIONS (2)
  - ILL-DEFINED DISORDER [None]
  - ORAL CANDIDIASIS [None]
